FAERS Safety Report 17571220 (Version 1)
Quarter: 2020Q1

REPORT INFORMATION
  Report Type: Spontaneous
  Country: SE (occurrence: SE)
  Receive Date: 20200323
  Receipt Date: 20200323
  Transmission Date: 20200409
  Serious: Yes (Other)
  Sender: FDA-Public Use
  Company Number: SE-BAYER-2019-216862

PATIENT
  Age: 27 Year
  Sex: Female

DRUGS (1)
  1. LEVONORGESTREL IUS [UNKNOWN] [Suspect]
     Active Substance: LEVONORGESTREL
     Route: 015

REACTIONS (5)
  - Ectopic pregnancy with contraceptive device [None]
  - Oophorectomy [None]
  - Hormone level abnormal [Not Recovered/Not Resolved]
  - Drug ineffective [None]
  - Blood testosterone increased [Not Recovered/Not Resolved]
